FAERS Safety Report 13456211 (Version 2)
Quarter: 2017Q2

REPORT INFORMATION
  Report Type: Report from Study
  Country: FR (occurrence: FR)
  Receive Date: 20170418
  Receipt Date: 20170427
  Transmission Date: 20170830
  Serious: Yes (Death)
  Sender: FDA-Public Use
  Company Number: FR-SEATTLE GENETICS-2016SGN02110

PATIENT

DRUGS (10)
  1. BRENTUXIMAB VEDOTIN [Suspect]
     Active Substance: BRENTUXIMAB VEDOTIN
     Indication: HODGKIN^S DISEASE
     Dosage: 140 MG, UNK
     Route: 065
     Dates: start: 20160330
  2. ETOPOSIDE. [Suspect]
     Active Substance: ETOPOSIDE
     Indication: HODGKIN^S DISEASE
     Dosage: 9800 MG, UNK
     Route: 042
     Dates: start: 20160529, end: 20160529
  3. BRENTUXIMAB VEDOTIN [Suspect]
     Active Substance: BRENTUXIMAB VEDOTIN
     Dosage: 150 MG, UNK
     Route: 042
     Dates: start: 20160527
  4. CARBOPLATIN. [Suspect]
     Active Substance: CARBOPLATIN
     Indication: HODGKIN^S DISEASE
     Dosage: 196 MG, UNK
     Route: 042
     Dates: start: 20160528, end: 20160530
  5. OXALIPLATIN. [Concomitant]
     Active Substance: OXALIPLATIN
     Dosage: UNK
     Route: 065
  6. IFOSFAMIDE. [Suspect]
     Active Substance: IFOSFAMIDE
     Indication: HODGKIN^S DISEASE
  7. DEXAMETHASONE. [Concomitant]
     Active Substance: DEXAMETHASONE
     Dosage: UNK
     Route: 065
  8. CYTARABINE. [Concomitant]
     Active Substance: CYTARABINE
     Dosage: UNK
     Route: 065
  9. CARBOPLATIN. [Suspect]
     Active Substance: CARBOPLATIN
     Indication: HODGKIN^S DISEASE
  10. IFOSFAMIDE. [Suspect]
     Active Substance: IFOSFAMIDE
     Indication: HODGKIN^S DISEASE
     Dosage: 690 MG, UNK
     Route: 042
     Dates: start: 20160529, end: 20160529

REACTIONS (6)
  - Nervous system disorder [Fatal]
  - Hodgkin^s disease [Fatal]
  - Histiocytosis haematophagic [Fatal]
  - Off label use [Unknown]
  - Candida infection [Fatal]
  - Septic shock [Fatal]

NARRATIVE: CASE EVENT DATE: 20160525
